FAERS Safety Report 15302138 (Version 1)
Quarter: 2018Q3

REPORT INFORMATION
  Report Type: Report from Study
  Country: BE (occurrence: BE)
  Receive Date: 20180821
  Receipt Date: 20180821
  Transmission Date: 20181010
  Serious: Yes (Hospitalization, Other)
  Sender: FDA-Public Use
  Company Number: BE-PFIZER INC-2018090630

PATIENT
  Age: 81 Year
  Sex: Female
  Weight: 69 kg

DRUGS (5)
  1. CARBOPLATIN. [Suspect]
     Active Substance: CARBOPLATIN
     Indication: OVARIAN CANCER
     Dosage: EVERY 3 WEEKS,TO REACH THE AREA UNDER THE CONCENTRATION TIM CURVE(AUC) OF 4 DATE OF MOST RECENT DOSE
     Route: 042
     Dates: start: 20151002, end: 20160415
  2. BEVACIZUMAB. [Suspect]
     Active Substance: BEVACIZUMAB
     Indication: OVARIAN CANCER
     Dosage: 1035 MG, EVERY 3 WEEKS
     Route: 042
     Dates: start: 20151002
  3. BEVACIZUMAB. [Suspect]
     Active Substance: BEVACIZUMAB
     Dosage: 1006 MG, EVERY 3 WEEKS (LAST DOSE PRIOR TO SAE (DVT)
     Route: 042
     Dates: start: 20160122
  4. BEVACIZUMAB. [Suspect]
     Active Substance: BEVACIZUMAB
     Dosage: 975 MG, EVERY 3 WEEKS  (MOST RECENT DOSE PRIOR TO SAE ON 04MAR2016)
     Route: 042
     Dates: start: 20160415, end: 20160415
  5. PACLITAXEL HOSPIRA [Suspect]
     Active Substance: PACLITAXEL
     Indication: OVARIAN CANCER
     Dosage: 60 MG/M2, WEEKLY (MOST RECENT DOSE OF PACLITAXEL (100, UNIT NOT REPORTED)
     Route: 042
     Dates: start: 20151002, end: 20160415

REACTIONS (6)
  - Hypomagnesaemia [Not Recovered/Not Resolved]
  - Hyperkalaemia [Recovered/Resolved]
  - Deep vein thrombosis [Recovered/Resolved]
  - Anaemia [Recovered/Resolved]
  - Hypertension [Recovered/Resolved]
  - Tumour haemorrhage [Recovered/Resolved]

NARRATIVE: CASE EVENT DATE: 20151002
